FAERS Safety Report 11687612 (Version 1)
Quarter: 2015Q4

REPORT INFORMATION
  Report Type: Spontaneous
  Country: IL (occurrence: IL)
  Receive Date: 20151030
  Receipt Date: 20151030
  Transmission Date: 20160304
  Serious: Yes (Other)
  Sender: FDA-Public Use
  Company Number: IL-BAXTER-2015BAX057996

PATIENT
  Age: 29 Year
  Sex: Female

DRUGS (6)
  1. ZOFRAN [Suspect]
     Active Substance: ONDANSETRON HYDROCHLORIDE
     Indication: PARENTERAL NUTRITION
     Route: 042
     Dates: start: 20150916
  2. CERNEVIT [Suspect]
     Active Substance: VITAMINS
     Indication: PARENTERAL NUTRITION
     Route: 042
     Dates: start: 20150916
  3. ADDAMEL [Suspect]
     Active Substance: ELECTROLYTES NOS\MINERALS\SORBITOL
     Indication: PARENTERAL NUTRITION
     Route: 042
     Dates: start: 20150916
  4. HEPARIN INJECTION [Suspect]
     Active Substance: HEPARIN SODIUM
     Indication: PARENTERAL NUTRITION
     Route: 042
     Dates: start: 20150916
  5. DEXTROSE 5% USP VIAFLEX [Suspect]
     Active Substance: DEXTROSE
     Indication: PARENTERAL NUTRITION
     Route: 042
     Dates: start: 20150916
  6. BD 0.9% SODIUM CHLORIDE INJ 10ML [Suspect]
     Active Substance: SODIUM CHLORIDE
     Indication: PARENTERAL NUTRITION
     Route: 042
     Dates: start: 20150916

REACTIONS (3)
  - Arthralgia [Not Recovered/Not Resolved]
  - Migraine [Not Recovered/Not Resolved]
  - Peripheral nerve injury [Not Recovered/Not Resolved]

NARRATIVE: CASE EVENT DATE: 201510
